FAERS Safety Report 20611306 (Version 1)
Quarter: 2022Q1

REPORT INFORMATION
  Report Type: Spontaneous
  Country: US (occurrence: US)
  Receive Date: 20220318
  Receipt Date: 20220318
  Transmission Date: 20220424
  Serious: Yes (Other)
  Sender: FDA-Public Use
  Company Number: US-drreddys-LIT/USA/22/0147847

PATIENT
  Age: 19 Year
  Sex: Female

DRUGS (38)
  1. FEXOFENADINE [Suspect]
     Active Substance: FEXOFENADINE HYDROCHLORIDE
     Indication: Product used for unknown indication
  2. DIPHENHYDRAMINE HYDROCHLORIDE [Suspect]
     Active Substance: DIPHENHYDRAMINE HYDROCHLORIDE
     Indication: Product used for unknown indication
  3. FAMOTIDINE [Suspect]
     Active Substance: FAMOTIDINE
     Indication: Product used for unknown indication
  4. RANITIDINE [Suspect]
     Active Substance: RANITIDINE
     Indication: Product used for unknown indication
  5. LEVOCETIRIZINE DIHYDROCHLORIDE [Suspect]
     Active Substance: LEVOCETIRIZINE DIHYDROCHLORIDE
     Indication: Product used for unknown indication
  6. CETIRIZINE [Suspect]
     Active Substance: CETIRIZINE HYDROCHLORIDE
     Indication: Product used for unknown indication
  7. MONTELUKAST [Suspect]
     Active Substance: MONTELUKAST SODIUM
     Indication: Product used for unknown indication
  8. HYDROXYZINE HYDROCHLORIDE [Suspect]
     Active Substance: HYDROXYZINE HYDROCHLORIDE
     Indication: Product used for unknown indication
  9. IMATINIB MESYLATE [Suspect]
     Active Substance: IMATINIB MESYLATE
     Indication: Product used for unknown indication
  10. CELECOXIB [Suspect]
     Active Substance: CELECOXIB
     Indication: Obsessive-compulsive disorder
  11. CELECOXIB [Suspect]
     Active Substance: CELECOXIB
     Indication: Feeling abnormal
  12. HYDROXYCHLOROQUINE SULFATE [Suspect]
     Active Substance: HYDROXYCHLOROQUINE SULFATE
     Indication: Tick-borne viral encephalitis
  13. MINOCYCLINE HYDROCHLORIDE [Suspect]
     Active Substance: MINOCYCLINE HYDROCHLORIDE
     Indication: Tick-borne viral encephalitis
  14. LURASIDONE [Suspect]
     Active Substance: LURASIDONE
     Indication: Obsessive-compulsive disorder
  15. LAMOTRIGINE [Suspect]
     Active Substance: LAMOTRIGINE
     Indication: Obsessive-compulsive disorder
  16. PROGESTERONE [Suspect]
     Active Substance: PROGESTERONE
     Indication: Obsessive-compulsive disorder
  17. LORATADINE [Suspect]
     Active Substance: LORATADINE
     Indication: Product used for unknown indication
  18. AZITHROMYCIN [Suspect]
     Active Substance: AZITHROMYCIN
     Indication: Tick-borne viral encephalitis
  19. RIFAMPIN [Suspect]
     Active Substance: RIFAMPIN
     Indication: Tick-borne viral encephalitis
  20. CLARITHROMYCIN [Suspect]
     Active Substance: CLARITHROMYCIN
     Indication: Tick-borne viral encephalitis
  21. COTRIMOXAZOLE [Suspect]
     Active Substance: SULFAMETHOXAZOLE\TRIMETHOPRIM
     Indication: Tick-borne viral encephalitis
  22. DOXYCYCLINE [Suspect]
     Active Substance: DOXYCYCLINE
     Indication: Tick-borne viral encephalitis
  23. VILAZODONE [Suspect]
     Active Substance: VILAZODONE
     Indication: Obsessive-compulsive disorder
  24. VILAZODONE [Suspect]
     Active Substance: VILAZODONE
     Indication: Bartonellosis
  25. human papillomavirus vaccine recombinant quadrivalent merck [Gardasil] [Concomitant]
     Indication: Product used for unknown indication
  26. CEFTRIAXONE [Concomitant]
     Active Substance: CEFTRIAXONE
     Indication: Product used for unknown indication
  27. FLUDROCORTISONE [Concomitant]
     Active Substance: FLUDROCORTISONE
     Indication: Product used for unknown indication
  28. PROPRANOLOL [Concomitant]
     Active Substance: PROPRANOLOL HYDROCHLORIDE
     Indication: Product used for unknown indication
  29. CEFUROXIME [Concomitant]
     Active Substance: CEFUROXIME
     Indication: Lyme disease
     Route: 048
  30. CEFUROXIME [Concomitant]
     Active Substance: CEFUROXIME
     Indication: Bartonellosis
  31. ATOVAQUONE [Concomitant]
     Active Substance: ATOVAQUONE
     Indication: Lyme disease
  32. ATOVAQUONE [Concomitant]
     Active Substance: ATOVAQUONE
     Indication: Bartonellosis
  33. PROGUANIL [Concomitant]
     Active Substance: PROGUANIL
     Indication: Lyme disease
  34. PROGUANIL [Concomitant]
     Active Substance: PROGUANIL
     Indication: Bartonellosis
  35. BUPROPION [Concomitant]
     Active Substance: BUPROPION
     Indication: Product used for unknown indication
  36. NORTRIPTYLINE [Concomitant]
     Active Substance: NORTRIPTYLINE
     Indication: Product used for unknown indication
  37. PRUCALOPRIDE [Concomitant]
     Active Substance: PRUCALOPRIDE
     Indication: Product used for unknown indication
  38. Bepecin [BPC-157] [Concomitant]
     Indication: Product used for unknown indication

REACTIONS (3)
  - Condition aggravated [Recovered/Resolved]
  - Drug intolerance [Unknown]
  - Drug ineffective [Unknown]
